FAERS Safety Report 9573280 (Version 1)
Quarter: 2013Q4

REPORT INFORMATION
  Report Type: Spontaneous
  Country: IT (occurrence: IT)
  Receive Date: 20131001
  Receipt Date: 20131001
  Transmission Date: 20140711
  Serious: Yes (Other)
  Sender: FDA-Public Use
  Company Number: IT-TEVA-434289ISR

PATIENT
  Age: 45 Year
  Sex: Male
  Weight: 90 kg

DRUGS (7)
  1. VINCRISTINA TEVA [Suspect]
     Indication: NON-HODGKIN^S LYMPHOMA
     Route: 041
     Dates: start: 20130215, end: 20130516
  2. MABTHERA [Suspect]
     Indication: NON-HODGKIN^S LYMPHOMA
     Route: 042
     Dates: start: 20130215, end: 20130516
  3. ENDOXAN BAXTER [Suspect]
     Indication: NON-HODGKIN^S LYMPHOMA
     Route: 042
     Dates: start: 20130215, end: 20130516
  4. ADRIBLASTINA [Suspect]
     Indication: NON-HODGKIN^S LYMPHOMA
     Route: 041
     Dates: start: 20130215, end: 20130516
  5. SOLDESAM [Concomitant]
     Dosage: 4 MILLIGRAM DAILY;
     Route: 042
  6. RANIDIL [Concomitant]
     Dosage: 50 MILLIGRAM DAILY;
     Route: 042
  7. ONDANSETRONE HIKMA [Concomitant]
     Dosage: 8 MILLIGRAM DAILY;
     Route: 042

REACTIONS (4)
  - Fatigue [Unknown]
  - Nausea [Unknown]
  - Stomatitis [Unknown]
  - Vomiting [Unknown]
